FAERS Safety Report 9495891 (Version 2)
Quarter: 2014Q1

REPORT INFORMATION
  Report Type: Report from Study
  Country: DE (occurrence: DE)
  Receive Date: 20130903
  Receipt Date: 20140122
  Transmission Date: 20141002
  Serious: Yes (Other)
  Sender: FDA-Public Use
  Company Number: DE-US-EMD SERONO, INC.-7233499

PATIENT
  Sex: Female
  Weight: 20 kg

DRUGS (2)
  1. SAIZEN [Suspect]
     Indication: SMALL FOR DATES BABY
     Route: 058
     Dates: start: 20110610, end: 20130710
  2. SAIZEN [Suspect]
     Route: 058

REACTIONS (2)
  - Glucose tolerance test abnormal [Recovered/Resolved]
  - Glycosuria [Recovered/Resolved]
